FAERS Safety Report 7035741-3 (Version None)
Quarter: 2010Q4

REPORT INFORMATION
  Report Type: 
  Country: None (occurrence: None)
  Receive Date: 20101008
  Receipt Date: 20100927
  Transmission Date: 20110411
  Serious: Yes (Other)
  Sender: FDA-Public Use
  Company Number: GB-PFIZER INC-2009283289

PATIENT
  Sex: Male

DRUGS (1)
  1. NICOTINE [Suspect]
     Dosage: UNSPECIFIED
     Route: 055

REACTIONS (3)
  - CONVULSION [None]
  - SPEECH DISORDER [None]
  - TONGUE BITING [None]
